FAERS Safety Report 16209327 (Version 2)
Quarter: 2019Q2

REPORT INFORMATION
  Report Type: Report from Study
  Country: UG (occurrence: UG)
  Receive Date: 20190417
  Receipt Date: 20190509
  Transmission Date: 20190711
  Serious: Yes (Congenital Anomaly, Other)
  Sender: FDA-Public Use
  Company Number: UG-MYLANLABS-2019M1036892

PATIENT
  Sex: Male
  Weight: 3.1 kg

DRUGS (4)
  1. DOLUTEGRAVIR MYLAN [Suspect]
     Active Substance: DOLUTEGRAVIR
     Indication: PRODUCT USED FOR UNKNOWN INDICATION
     Dosage: 50 MILLIGRAM, QD
     Route: 064
     Dates: start: 20180414
  2. LAMIVUDINE, TENOFOVIR MYLAN [Suspect]
     Active Substance: LAMIVUDINE\TENOFOVIR
     Indication: PRODUCT USED FOR UNKNOWN INDICATION
     Dosage: 1 TAB/CAP
     Route: 064
     Dates: start: 20180414
  3. PROGESTERONE. [Suspect]
     Active Substance: PROGESTERONE
     Indication: PRODUCT USED FOR UNKNOWN INDICATION
     Route: 064
  4. TRIMETHOPRIM SULFAMETHOXAZOLE [Suspect]
     Active Substance: SULFAMETHOXAZOLE\TRIMETHOPRIM
     Indication: PRODUCT USED FOR UNKNOWN INDICATION
     Route: 064

REACTIONS (6)
  - Foetal exposure during pregnancy [Recovered/Resolved]
  - Polydactyly [Unknown]
  - Congenital skin dimples [Unknown]
  - Talipes [Unknown]
  - Birth mark [Unknown]
  - Conjunctivitis [Unknown]
